FAERS Safety Report 5961899-0 (Version None)
Quarter: 2008Q4

REPORT INFORMATION
  Report Type: 
  Country: None (occurrence: None)
  Receive Date: 20081121
  Receipt Date: 20081113
  Transmission Date: 20090506
  Serious: Yes (Other)
  Sender: FDA-Public Use
  Company Number: US-KINGPHARMUSA00001-K200801297

PATIENT
  Age: 72 Year
  Sex: Male
  Weight: 100 kg

DRUGS (12)
  1. ALTACE [Suspect]
     Indication: HYPERTENSION
     Dosage: 5 MG, BID
     Route: 048
     Dates: end: 20070827
  2. ALTACE [Suspect]
     Indication: CARDIOVASCULAR EVENT PROPHYLAXIS
     Dosage: 2.5 MG, QD
     Route: 048
     Dates: start: 20080304, end: 20080101
  3. ALTACE [Suspect]
     Dosage: 5 MG, QD
     Dates: start: 20080101, end: 20081001
  4. ACYCLOVIR [Concomitant]
     Dosage: 1000 MG, UNK
     Route: 048
  5. ASPIRIN [Concomitant]
     Dosage: 75 MG, UNK
     Route: 048
  6. ATENOLOL [Concomitant]
     Dosage: 25 MG, UNK
     Route: 048
  7. ATORVASTATIN CALCIUM [Concomitant]
     Dosage: 80 MG, UNK
     Route: 048
  8. CLOPIDOGREL [Concomitant]
     Dosage: 75 MG, UNK
     Route: 048
  9. NITROGLYCERIN [Concomitant]
     Dosage: 400 U, UNK
  10. OMACOR                             /01403701/ [Concomitant]
     Dosage: 1000 MG, UNK
     Route: 048
  11. OMEPRAZOLE [Concomitant]
     Dosage: 20 MG, UNK
     Route: 048
  12. ACETAMINOPHEN [Concomitant]
     Dosage: 500 MG, UNK
     Route: 048

REACTIONS (4)
  - AGITATION [None]
  - DROOLING [None]
  - DYSARTHRIA [None]
  - PARKINSONISM [None]
